FAERS Safety Report 9804049 (Version 1)
Quarter: 2014Q1

REPORT INFORMATION
  Report Type: Spontaneous
  Country: US (occurrence: None)
  Receive Date: 20140103
  Receipt Date: 20140103
  Transmission Date: 20141002
  Serious: Yes (Hospitalization)
  Sender: FDA-Public Use
  Company Number: SP07361

PATIENT
  Sex: Female

DRUGS (1)
  1. MOVIPREP [Suspect]
     Indication: BOWEL PREPARATION
     Route: 048
     Dates: start: 20131208

REACTIONS (5)
  - Vomiting projectile [None]
  - Confusional state [None]
  - Dehydration [None]
  - Abasia [None]
  - Frequent bowel movements [None]
